FAERS Safety Report 4651905-8 (Version None)
Quarter: 2005Q2

REPORT INFORMATION
  Report Type: 
  Country: None (occurrence: None)
  Receive Date: 20050504
  Receipt Date: 20041025
  Transmission Date: 20051028
  Serious: Yes (Other)
  Sender: FDA-Public Use
  Company Number: PHNR2004AU01558

PATIENT
  Age: 80 Year
  Sex: Male

DRUGS (2)
  1. ZOMETA [Suspect]
     Indication: PROSTATE CANCER
     Dosage: 4 MG, QMO
     Dates: start: 20040101, end: 20040701
  2. ZOMETA [Suspect]
     Dosage: 2 MG, QMO
     Dates: start: 20040801, end: 20041001

REACTIONS (3)
  - BLOOD CREATININE INCREASED [None]
  - DENTAL OPERATION [None]
  - OSTEONECROSIS [None]
